FAERS Safety Report 5360310-0 (Version None)
Quarter: 2007Q2

REPORT INFORMATION
  Report Type: 
  Country: None (occurrence: None)
  Receive Date: 20070614
  Receipt Date: 20070530
  Transmission Date: 20071010
  Serious: Yes (Hospitalization)
  Sender: FDA-Public Use
  Company Number: 157355USA

PATIENT
  Age: 95 Year
  Sex: Female

DRUGS (3)
  1. AZITHROMYCIN [Suspect]
     Indication: COUGH
  2. AZITHROMYCIN [Suspect]
     Indication: PHARYNGITIS
  3. AZITHROMYCIN [Suspect]
     Indication: PYREXIA

REACTIONS (9)
  - ASTHENIA [None]
  - BIFASCICULAR BLOCK [None]
  - CARDIAC ARREST [None]
  - DIZZINESS [None]
  - ELECTROCARDIOGRAM T WAVE INVERSION [None]
  - LOSS OF CONSCIOUSNESS [None]
  - MYOCARDIAL INFARCTION [None]
  - SINUS BRADYCARDIA [None]
  - TORSADE DE POINTES [None]
